FAERS Safety Report 5375240-8 (Version None)
Quarter: 2007Q2

REPORT INFORMATION
  Report Type: 
  Country: None (occurrence: None)
  Receive Date: 20070629
  Receipt Date: 20070130
  Transmission Date: 20071010
  Serious: Yes (Other)
  Sender: FDA-Public Use
  Company Number: US-ASTRAZENECA-2007UW01908

PATIENT
  Age: 63 Year
  Sex: Female
  Weight: 106.1 kg

DRUGS (9)
  1. TAMOXIFEN CITRATE [Suspect]
     Indication: BREAST CANCER
     Route: 048
     Dates: start: 19920101
  2. FOSAMAX [Concomitant]
  3. CENTRUM [Concomitant]
  4. CAPTOPRIL [Concomitant]
  5. HYDROCHLOROTHIAZIDE [Concomitant]
  6. GLYBURIDE [Concomitant]
  7. SYNTHROID [Concomitant]
  8. METFORMIN HCL [Concomitant]
  9. DILTIAZEM [Concomitant]

REACTIONS (2)
  - DISEASE PROGRESSION [None]
  - HOT FLUSH [None]
